FAERS Safety Report 10813607 (Version 3)
Quarter: 2016Q2

REPORT INFORMATION
  Report Type: Report from Study
  Country: IT (occurrence: IT)
  Receive Date: 20150218
  Receipt Date: 20160629
  Transmission Date: 20160815
  Serious: Yes (Hospitalization, Other)
  Sender: FDA-Public Use
  Company Number: PHHY2014IT135911

PATIENT
  Age: 25 Year
  Sex: Female
  Weight: 52 kg

DRUGS (1)
  1. GILENYA [Suspect]
     Active Substance: FINGOLIMOD HYDROCHLORIDE
     Indication: MULTIPLE SCLEROSIS
     Dosage: 0.5 MG, QD
     Route: 048
     Dates: start: 20141014, end: 20150401

REACTIONS (4)
  - Atrioventricular block complete [Unknown]
  - Atrioventricular block second degree [Recovered/Resolved]
  - Sinus arrhythmia [Unknown]
  - Extrasystoles [Unknown]

NARRATIVE: CASE EVENT DATE: 20141014
